FAERS Safety Report 8255481 (Version 4)
Quarter: 2013Q3

REPORT INFORMATION
  Report Type: Spontaneous
  Country: CA (occurrence: CA)
  Receive Date: 20111118
  Receipt Date: 20130805
  Transmission Date: 20140515
  Serious: Yes (Hospitalization)
  Sender: FDA-Public Use
  Company Number: CA-GENZYME-FABR-1002236

PATIENT
  Age: 76 Year
  Sex: Female
  Weight: 55.6 kg

DRUGS (6)
  1. FABRAZYME [Suspect]
     Indication: FABRY^S DISEASE
     Dosage: 0.89 MG/KG, Q2W
     Route: 042
     Dates: start: 20090909
  2. METOPROLOL [Concomitant]
     Indication: THROAT TIGHTNESS
     Dosage: 40 MG, BID
     Route: 065
  3. DISOPYRAMIDE [Concomitant]
     Indication: LEFT VENTRICLE OUTFLOW TRACT OBSTRUCTION
     Dosage: 200 MG, TID
     Route: 065
     Dates: start: 200711
  4. PANTOLOC [Concomitant]
     Indication: MELAENA
     Dosage: 40 MG, ONCE
     Route: 065
     Dates: start: 20111026
  5. FLAGYL [Concomitant]
     Indication: CLOSTRIDIUM DIFFICILE INFECTION
     Dosage: 500 MG, TID
     Route: 065
     Dates: start: 20111107
  6. ASA [Concomitant]
     Indication: PRODUCT USED FOR UNKNOWN INDICATION
     Dosage: 81 MG, ONCE
     Route: 065

REACTIONS (7)
  - Dehydration [Unknown]
  - Orthostatic hypotension [Not Recovered/Not Resolved]
  - Decreased appetite [Not Recovered/Not Resolved]
  - Tachycardia [Unknown]
  - Dizziness [Unknown]
  - Myocardial infarction [Recovered/Resolved]
  - Asthenia [Recovered/Resolved]
